FAERS Safety Report 8696924 (Version 3)
Quarter: 2013Q2

REPORT INFORMATION
  Report Type: Spontaneous
  Country: FR (occurrence: None)
  Receive Date: 20120716
  Receipt Date: 20130610
  Transmission Date: 20140414
  Serious: Yes (Hospitalization)
  Sender: FDA-Public Use
  Company Number: 2012160883

PATIENT
  Age: 76 Year
  Sex: Female

DRUGS (6)
  1. PIPERACILLIN AND TAZOBACTAM [Suspect]
     Indication: PSEUDOMONAS INFECTION
     Dosage: PIPERACILLLIN 4G, TAZOBACTAM 0.5G, 3X/DAY, INTRAVENOUS
     Route: 042
     Dates: start: 20120615
  2. FRAGMIN [Suspect]
     Indication: THROMBOSIS PROPHYLAXIS
     Dosage: 5000 IU DAILY, INTRAVENOUS
     Route: 042
     Dates: start: 20120615
  3. CIPROFLOXACIN [Suspect]
     Indication: PSEUDOMONAS INFECTION
     Dosage: 750 MG, 2X/DAY, ORAL
     Route: 048
     Dates: start: 20120615, end: 20120618
  4. PREDNISOLONE [Suspect]
     Route: 048
     Dates: start: 20120615
  5. FERROUS SULFATE\FOLIC ACID [Suspect]
     Indication: IRON DEFICIENCY ANAEMIA
     Dosage: 1DF, DAILY, ORAL
     Route: 048
     Dates: start: 20120615
  6. CALCIUM CARBONATE\CHOLECALCIFEROL [Suspect]
     Indication: VITAMIN D DEFICIENCY
     Dosage: 2 DF, DAILY, ORAL
     Route: 048
     Dates: start: 20120615

REACTIONS (4)
  - LIVER INJURY [None]
  - Liver injury [None]
  - Aspartate aminotransferase increased [None]
  - Alanine aminotransferase increased [None]
